FAERS Safety Report 5881096-7 (Version None)
Quarter: 2008Q3

REPORT INFORMATION
  Report Type: 
  Country: None (occurrence: None)
  Receive Date: 20080912
  Receipt Date: 20080611
  Transmission Date: 20090109
  Serious: No
  Sender: FDA-Public Use
  Company Number: US-ABBOTT-08P-163-0458566-00

PATIENT
  Sex: Male
  Weight: 76.272 kg

DRUGS (1)
  1. HUMIRA [Suspect]
     Indication: ANKYLOSING SPONDYLITIS
     Dosage: ONE PEN EVERY MONTH
     Route: 058
     Dates: start: 20060615

REACTIONS (2)
  - PROCEDURAL COMPLICATION [None]
  - RESPIRATORY TRACT INFECTION [None]
